FAERS Safety Report 25749956 (Version 2)
Quarter: 2025Q3

REPORT INFORMATION
  Report Type: Spontaneous
  Country: GB (occurrence: GB)
  Receive Date: 20250902
  Receipt Date: 20250909
  Transmission Date: 20251020
  Serious: Yes (Other)
  Sender: ABBVIE
  Company Number: None

PATIENT
  Age: 64 Year
  Sex: Female
  Weight: 85 kg

DRUGS (2)
  1. UPADACITINIB [Interacting]
     Active Substance: UPADACITINIB
     Indication: Psoriatic arthropathy
     Dosage: 15MG X 1 DAILY
     Route: 048
     Dates: start: 20250805, end: 20250819
  2. RIMEGEPANT [Suspect]
     Active Substance: RIMEGEPANT
     Indication: Adverse drug reaction
     Dates: end: 20250210

REACTIONS (5)
  - Migraine [Recovered/Resolved]
  - Drug interaction [Unknown]
  - Migraine [Unknown]
  - Diarrhoea [Recovered/Resolved]
  - Gastrointestinal pain [Unknown]

NARRATIVE: CASE EVENT DATE: 20250801
